FAERS Safety Report 10045979 (Version 2)
Quarter: 2014Q1

REPORT INFORMATION
  Report Type: Spontaneous
  Country: US (occurrence: US)
  Receive Date: 20140330
  Receipt Date: 20140330
  Transmission Date: 20141002
  Serious: Yes (Disabling)
  Sender: FDA-Public Use
  Company Number: US-GE HEALTHCARE MEDICAL DIAGNOSTICS-OSCN-PR-0905S-0251

PATIENT
  Age: 51 Year
  Sex: Female

DRUGS (3)
  1. GADOLINIUM (UNSPECIFIED) [Suspect]
     Indication: ANGIOPLASTY
     Route: 042
     Dates: start: 20041118, end: 20041118
  2. GADOLINIUM (UNSPECIFIED) [Suspect]
     Indication: PRODUCT USED FOR UNKNOWN INDICATION
     Route: 042
     Dates: start: 20051201, end: 20051201
  3. GADOLINIUM (UNSPECIFIED) [Suspect]
     Indication: VENOGRAM
     Route: 042
     Dates: start: 20051215, end: 20051215

REACTIONS (1)
  - Nephrogenic systemic fibrosis [Not Recovered/Not Resolved]
